FAERS Safety Report 15884616 (Version 2)
Quarter: 2019Q1

REPORT INFORMATION
  Report Type: Spontaneous
  Country: JP (occurrence: JP)
  Receive Date: 20190129
  Receipt Date: 20190315
  Transmission Date: 20190417
  Serious: Yes (Other)
  Sender: FDA-Public Use
  Company Number: JP-PFIZER INC-2019032540

PATIENT
  Age: 69 Year
  Sex: Male

DRUGS (11)
  1. EPIRUBICIN [Concomitant]
     Active Substance: EPIRUBICIN
     Indication: CHEMOTHERAPY
     Dosage: UNK (40 MG/BODY), CYCLIC
  2. 5-DFUR [Concomitant]
     Indication: BREAST CANCER METASTATIC
     Dosage: 1200 MG, UNK
  3. ESTRACYT [Suspect]
     Active Substance: ESTRAMUSTINE PHOSPHATE SODIUM
     Indication: PROSTATE CANCER
     Dosage: 626.8 MG, DAILY
     Route: 048
  4. 5 FLUORO URACIL [Concomitant]
     Active Substance: FLUOROURACIL
     Indication: BREAST CANCER MALE
     Dosage: UNK
     Route: 048
  5. 5 FLUORO URACIL [Concomitant]
     Active Substance: FLUOROURACIL
     Indication: BREAST CANCER METASTATIC
  6. CYCLOPHOSPHAMIDE. [Concomitant]
     Active Substance: CYCLOPHOSPHAMIDE
     Indication: BREAST CANCER MALE
     Dosage: 100 MG, CYCLIC (100 MG DAILY)
     Route: 048
  7. CYCLOPHOSPHAMIDE. [Concomitant]
     Active Substance: CYCLOPHOSPHAMIDE
     Indication: CHEMOTHERAPY
  8. 5 FLUORO URACIL [Concomitant]
     Active Substance: FLUOROURACIL
     Indication: CHEMOTHERAPY
     Dosage: UNK, CYCLIC (500 MG/BODY, EVERY 2 WEEKS)
  9. TOREMIFENE [Suspect]
     Active Substance: TOREMIFENE
     Indication: ANTIOESTROGEN THERAPY
     Dosage: 120 MG, B.I.D (HIGH-DOSE)
  10. TOREMIFENE [Suspect]
     Active Substance: TOREMIFENE
     Indication: BREAST CANCER METASTATIC
  11. EPIRUBICIN [Concomitant]
     Active Substance: EPIRUBICIN
     Indication: BREAST CANCER MALE

REACTIONS (1)
  - Deep vein thrombosis [Unknown]
